FAERS Safety Report 9295524 (Version 2)
Quarter: 2013Q2

REPORT INFORMATION
  Report Type: Report from Study
  Country: US (occurrence: US)
  Receive Date: 20130517
  Receipt Date: 20130626
  Transmission Date: 20140414
  Serious: Yes (Other)
  Sender: FDA-Public Use
  Company Number: US-ASTELLAS-2013US005094

PATIENT
  Age: 61 Year
  Sex: Female
  Weight: 85 kg

DRUGS (22)
  1. ERLOTINIB TABLET [Suspect]
     Indication: BREAST CANCER METASTATIC
     Dosage: 150 MG, UID/QD
     Route: 048
     Dates: start: 20130321, end: 20130502
  2. METFORMIN [Suspect]
     Indication: BREAST CANCER METASTATIC
     Dosage: 850 MG, BID
     Route: 048
     Dates: start: 20130328, end: 20130502
  3. METFORMIN [Suspect]
     Dosage: 850 MG, UID/QD
     Route: 048
     Dates: start: 20130321, end: 20130502
  4. NORVASC [Concomitant]
     Indication: PRODUCT USED FOR UNKNOWN INDICATION
     Dosage: 10 MG, UID/QD
     Route: 048
  5. ATENOLOL [Concomitant]
     Indication: PRODUCT USED FOR UNKNOWN INDICATION
     Dosage: 50 MG, BID
     Route: 048
  6. LEXAPRO [Concomitant]
     Indication: PRODUCT USED FOR UNKNOWN INDICATION
     Dosage: 10 MG, UID/QD
     Route: 048
  7. LEVOTHYROXINE [Concomitant]
     Indication: PRODUCT USED FOR UNKNOWN INDICATION
     Dosage: 100 UG, UID/QD
     Route: 048
  8. SEROQUEL [Concomitant]
     Indication: PRODUCT USED FOR UNKNOWN INDICATION
     Dosage: 12.5 MG, QHS
     Route: 048
  9. TYLENOL                            /00020001/ [Concomitant]
     Indication: PRODUCT USED FOR UNKNOWN INDICATION
     Dosage: 1000 MG, PRN
     Route: 048
  10. XANAX [Concomitant]
     Indication: PRODUCT USED FOR UNKNOWN INDICATION
     Dosage: 0.5 MG, PRN
     Route: 048
  11. CLINDAMYCIN [Concomitant]
     Indication: RASH
     Dosage: UNK
     Route: 061
  12. HYDROCORTISONE [Concomitant]
     Indication: RASH
     Dosage: UNK
     Route: 061
  13. IMODIUM [Concomitant]
     Indication: DIARRHOEA
     Dosage: UNK DF, PRN
     Route: 048
  14. ZOFRAN                             /00955301/ [Concomitant]
     Indication: PRODUCT USED FOR UNKNOWN INDICATION
     Dosage: 8 MG, Q12 HOURS PRN
     Route: 048
  15. PERCOCET                           /00867901/ [Concomitant]
     Indication: PRODUCT USED FOR UNKNOWN INDICATION
     Dosage: 1-2 TABS, PRN
     Route: 048
  16. COMPAZINE                          /00013304/ [Concomitant]
     Indication: PRODUCT USED FOR UNKNOWN INDICATION
     Dosage: 10 MG, Q6 HOURS PRN
     Route: 048
  17. CALCIUM W/MAGNESIUM [Concomitant]
     Indication: PRODUCT USED FOR UNKNOWN INDICATION
     Dosage: 1 DF, BID
     Route: 048
  18. GLUCOSAMINE AND CHONDROITIN [Concomitant]
     Indication: PRODUCT USED FOR UNKNOWN INDICATION
     Dosage: 1500 MG, TID
     Route: 048
  19. CENTRUM SILVER                     /06011601/ [Concomitant]
     Indication: PRODUCT USED FOR UNKNOWN INDICATION
     Dosage: 1 DF, UID/QD
     Route: 048
  20. PROBIOTICS [Concomitant]
     Indication: PRODUCT USED FOR UNKNOWN INDICATION
     Dosage: 1 DF, UID/QD
     Route: 048
  21. VITAMIN B COMPLEX                  /00056201/ [Concomitant]
     Indication: PRODUCT USED FOR UNKNOWN INDICATION
     Dosage: 1 DF, UID/QD
     Route: 048
  22. VITAMIN D                          /00107901/ [Concomitant]
     Indication: PRODUCT USED FOR UNKNOWN INDICATION
     Dosage: 400 IU, BID
     Route: 048

REACTIONS (2)
  - Off label use [Unknown]
  - Hypersensitivity [Recovering/Resolving]
